FAERS Safety Report 7729195-9 (Version None)
Quarter: 2011Q3

REPORT INFORMATION
  Report Type: 
  Country: None (occurrence: None)
  Receive Date: 20110906
  Receipt Date: 20110831
  Transmission Date: 20111222
  Serious: Yes (Other)
  Sender: FDA-Public Use
  Company Number: US-PFIZER INC-2011203277

PATIENT
  Sex: Male

DRUGS (2)
  1. HYDROMORPHONE [Concomitant]
     Dosage: 4 MG, UNK
  2. SUTENT [Suspect]
     Dosage: 50 MG, 1X/DAY (TAKE ONE CAPSULE BY MOUTH EVERY DAY FOR 4 WEEKS AND 2 WEEKS OFF, REPEAT FOR 1 YEAR)
     Route: 048

REACTIONS (9)
  - DIARRHOEA [None]
  - NAUSEA [None]
  - FATIGUE [None]
  - DECREASED APPETITE [None]
  - MOUTH ULCERATION [None]
  - MELAENA [None]
  - VOMITING [None]
  - ALOPECIA [None]
  - DIZZINESS [None]
